FAERS Safety Report 8258798-0 (Version None)
Quarter: 2012Q1

REPORT INFORMATION
  Report Type: 
  Country: None (occurrence: None)
  Receive Date: 20120322
  Receipt Date: 20120206
  Transmission Date: 20120608
  Serious: Yes (Death, Hospitalization)
  Sender: FDA-Public Use
  Company Number: UTC-015251

PATIENT
  Age: 69 Year
  Sex: Female
  Weight: 67.3 kg

DRUGS (5)
  1. LETAIRIS [Concomitant]
  2. OXYGEN (OXYGEN) [Concomitant]
  3. TYVASO [Suspect]
     Indication: PULMONARY ARTERIAL HYPERTENSION
     Dosage: 36 TO 42 MICROGRAMS (4 IN 1 D),INHALATION
     Route: 055
     Dates: start: 20120114, end: 20120201
  4. DIURETICS (DIURETICS) [Concomitant]
  5. ADCIRCA [Concomitant]

REACTIONS (2)
  - DEATH [None]
  - HYPOXIA [None]
